FAERS Safety Report 8805736 (Version 3)
Quarter: 2013Q1

REPORT INFORMATION
  Report Type: Spontaneous
  Country: US (occurrence: US)
  Receive Date: 20120924
  Receipt Date: 20130122
  Transmission Date: 20140127
  Serious: Yes (Hospitalization, Disabling, Other)
  Sender: FDA-Public Use
  Company Number: US-009507513-1103USA00944

PATIENT
  Sex: 0

DRUGS (6)
  1. FOSAMAX [Suspect]
     Indication: OSTEOPOROSIS
     Dosage: 70 MG, UNK
     Route: 048
     Dates: start: 20020101
  2. FOSAMAX [Suspect]
     Dosage: UNK
     Route: 048
     Dates: start: 200802
  3. FOSAMAX [Suspect]
     Indication: OSTEOPOROSIS
     Dosage: 70 MG, UNK
     Route: 048
     Dates: start: 20081003, end: 20100302
  4. CALCIUM (UNSPECIFIED) [Concomitant]
     Dosage: UNK
     Dates: start: 2004
  5. VITAMIN D (UNSPECIFIED) [Concomitant]
     Dosage: UNK
     Dates: start: 2004
  6. CENTRUM (MINERALS (UNSPECIFIED) (+) VITAMINS (UNSPECIFIED)) [Concomitant]
     Dosage: UNK
     Dates: start: 2004

REACTIONS (17)
  - Stress fracture [Unknown]
  - Blood cholesterol increased [Unknown]
  - Hypertension [Unknown]
  - Anaemia postoperative [Unknown]
  - Left ventricular hypertrophy [Unknown]
  - Electrolyte imbalance [Unknown]
  - Nodule [Unknown]
  - Atrophy [Unknown]
  - Blood calcium decreased [Unknown]
  - Femur fracture [Unknown]
  - Femur fracture [Unknown]
  - Low turnover osteopathy [Unknown]
  - Open reduction of fracture [Unknown]
  - Open reduction of fracture [Unknown]
  - Femur fracture [Unknown]
  - Transfusion [Unknown]
  - Osteoporosis [Unknown]
